FAERS Safety Report 19956386 (Version 2)
Quarter: 2022Q1

REPORT INFORMATION
  Report Type: Spontaneous
  Country: AU (occurrence: AU)
  Receive Date: 20211014
  Receipt Date: 20220310
  Transmission Date: 20220423
  Serious: Yes (Disabling, Other)
  Sender: FDA-Public Use
  Company Number: AU-ORGANON-O2110AUS001248

PATIENT
  Age: 26 Year
  Sex: Female

DRUGS (1)
  1. ELOCON [Suspect]
     Active Substance: MOMETASONE FUROATE
     Indication: Eczema
     Dosage: UNK

REACTIONS (2)
  - Steroid withdrawal syndrome [Recovering/Resolving]
  - Temperature regulation disorder [Recovering/Resolving]

NARRATIVE: CASE EVENT DATE: 20200401
